FAERS Safety Report 4925950-9 (Version None)
Quarter: 2006Q1

REPORT INFORMATION
  Report Type: 
  Country: None (occurrence: None)
  Receive Date: 20060228
  Receipt Date: 20050413
  Transmission Date: 20060701
  Serious: No
  Sender: FDA-Public Use
  Company Number: US-GLAXOSMITHKLINE-A0555023A

PATIENT

DRUGS (1)
  1. LAMICTAL [Suspect]

REACTIONS (1)
  - PAIN OF SKIN [None]
